FAERS Safety Report 19905455 (Version 2)
Quarter: 2021Q4

REPORT INFORMATION
  Report Type: Spontaneous
  Country: US (occurrence: US)
  Receive Date: 20210930
  Receipt Date: 20211007
  Transmission Date: 20220303
  Serious: Yes (Other)
  Sender: FDA-Public Use
  Company Number: US-MLMSERVICE-20210922-3118858-4

PATIENT
  Age: 73 Year
  Sex: Male

DRUGS (3)
  1. OXALIPLATIN [Suspect]
     Active Substance: OXALIPLATIN
     Indication: Oesophageal adenocarcinoma
     Dosage: UNK, QCY
     Dates: start: 2021
  2. FLUOROURACIL [Suspect]
     Active Substance: FLUOROURACIL
     Indication: Oesophageal adenocarcinoma
     Dosage: UNK, QCY
     Route: 040
     Dates: start: 2021
  3. LEUCOVORIN [Concomitant]
     Active Substance: LEUCOVORIN
     Indication: Oesophageal adenocarcinoma
     Dosage: UNK, QCY
     Dates: start: 2021

REACTIONS (3)
  - Blindness [Recovered/Resolved]
  - Cerebral vasoconstriction [Unknown]
  - Ocular toxicity [Recovered/Resolved]

NARRATIVE: CASE EVENT DATE: 20210101
